FAERS Safety Report 21252716 (Version 1)
Quarter: 2022Q3

REPORT INFORMATION
  Report Type: Spontaneous
  Country: NL (occurrence: NL)
  Receive Date: 20220825
  Receipt Date: 20220825
  Transmission Date: 20221027
  Serious: Yes (Other)
  Sender: FDA-Public Use
  Company Number: None

PATIENT
  Age: 72 Year
  Sex: Female
  Weight: 62 kg

DRUGS (13)
  1. HALOPERIDOL [Suspect]
     Active Substance: HALOPERIDOL
     Indication: Psychotic disorder
     Dosage: 1 MILLIGRAM DAILY; 1 X PER DAY 1 PIECE, FORM STRENGTH 1MG / BRAND NAME NOT SPECIFIED, THERAPY END DA
     Dates: start: 202207
  2. HALOPERIDOL [Suspect]
     Active Substance: HALOPERIDOL
     Indication: Hallucination
  3. LEVOTHYROXINE [Concomitant]
     Active Substance: LEVOTHYROXINE
     Indication: Product used for unknown indication
     Dosage: .02 MILLIGRAM DAILY; 1 DD 1, 25UG (ACID) / THYRAX DUOTAB TABLET, FORM STRENGTH:  0.025MG, THERAPY ST
  4. POVIDON [Concomitant]
     Indication: Product used for unknown indication
     Dosage: 2 GTT DAILY; 2 DD 1 DROP ODS, FORM STRENGTH 50MG/ML / BRAND NAME NOT SPECIFIED, THERAPY START DATE A
  5. HYDROXYCHLOROQUINE [Concomitant]
     Active Substance: HYDROXYCHLOROQUINE
     Indication: Product used for unknown indication
     Dosage: 200 MILLIGRAM DAILY; 1 DD1, FORM STRENGTH: 200MG / BRAND NAME NOT SPECIFIED, THERAPY START DATE AND
  6. GABAPENTIN [Concomitant]
     Active Substance: GABAPENTIN
     Indication: Product used for unknown indication
     Dosage: 1800 MILLIGRAM DAILY; 3 DD 1, FORM STRENGTH 600MG, FREQUENCY TIME-8 HRS / BRAND NAME NOT SPECIFIED,
  7. FAMOTIDINE [Concomitant]
     Active Substance: FAMOTIDINE
     Indication: Product used for unknown indication
     Dosage: 40 MILLIGRAM DAILY; 1 DD 1, FORM STRENGTH 40MG / BRAND NAME NOT SPECIFIED, THERAPY START DATE AND EN
  8. CALCIUM CARBONATE\CHOLECALCIFEROL [Concomitant]
     Active Substance: CALCIUM CARBONATE\CHOLECALCIFEROL
     Indication: Product used for unknown indication
     Dosage: 1 DOSAGE FORMS DAILY; 1 DD 1, CHEWTB 2,5G/800IE (1000MG CA) / BRAND NAME NOT SPECIFIED, THERAPY STAR
  9. VERAPAMIL [Concomitant]
     Active Substance: VERAPAMIL HYDROCHLORIDE
     Indication: Product used for unknown indication
     Dosage: 120 MILLIGRAM DAILY; 1 DD1, FORM STRENGTH 120MG / BRAND NAME NOT SPECIFIED, THERAPY START DATE AND E
  10. EZETIMIBE [Concomitant]
     Active Substance: EZETIMIBE
     Indication: Product used for unknown indication
     Dosage: 10 MILLIGRAM DAILY; 1 DD 1, 10MG / BRAND NAME NOT SPECIFIED, THERAPY START DATE AND END DATE: ASKU
  11. ACETAMINOPHEN [Concomitant]
     Active Substance: ACETAMINOPHEN
     Indication: Product used for unknown indication
     Dosage: 4 DD 2 PIECES, FORM STRENGTH 500MG, UNIT DOSE: 1000 MG, FREQUENCY TIME-6 HRS / BRAND NAME NOT SPECIF
  12. RIVAROXABAN [Concomitant]
     Active Substance: RIVAROXABAN
     Indication: Product used for unknown indication
     Dosage: 1DD 2, FORM STRENGTH: 10 MG, UNIT DOSE: 20MG, FREQUENCY TIME- 1 DAY / BRAND NAME NOT SPECIFIED, THER
  13. CEFUROXIME [Concomitant]
     Active Substance: CEFUROXIME
     Indication: Product used for unknown indication
     Dosage: 4500 MILLIGRAM DAILY; 3 DD 1500 MG, FORM STRENGTH: 1500 MG, UNIT DOSE: 1500 MG, FREQUENCY TIME-8 HRS

REACTIONS (2)
  - Inappropriate antidiuretic hormone secretion [Recovering/Resolving]
  - Hyponatraemia [Recovering/Resolving]

NARRATIVE: CASE EVENT DATE: 20220802
